FAERS Safety Report 14297305 (Version 2)
Quarter: 2018Q2

REPORT INFORMATION
  Report Type: Spontaneous
  Country: US (occurrence: US)
  Receive Date: 20171218
  Receipt Date: 20180508
  Transmission Date: 20180711
  Serious: No
  Sender: FDA-Public Use
  Company Number: US-PFIZER INC-2017534108

PATIENT
  Age: 51 Year
  Sex: Female

DRUGS (3)
  1. PARAPLATIN [Concomitant]
     Active Substance: CARBOPLATIN
     Dosage: UNK
  2. TAXOTERE [Suspect]
     Active Substance: DOCETAXEL
     Dosage: 152 MG, EVERY 3 WEEKS, 6 CYCLES
     Dates: start: 20120327, end: 20121102
  3. DOCETAXEL. [Suspect]
     Active Substance: DOCETAXEL
     Dosage: 152 MG, EVERY 3 WEEKS, 6 CYCLES
     Dates: start: 20120327, end: 20121107

REACTIONS (3)
  - Madarosis [Not Recovered/Not Resolved]
  - Alopecia [Not Recovered/Not Resolved]
  - Hair texture abnormal [Not Recovered/Not Resolved]

NARRATIVE: CASE EVENT DATE: 201301
